FAERS Safety Report 15347592 (Version 2)
Quarter: 2018Q4

REPORT INFORMATION
  Report Type: Spontaneous
  Country: DE (occurrence: DE)
  Receive Date: 20180904
  Receipt Date: 20180905
  Transmission Date: 20190204
  Serious: Yes (Death, Life-Threatening, Hospitalization)
  Sender: FDA-Public Use
  Company Number: DE-PFIZER INC-2018354934

PATIENT
  Age: 74 Year
  Sex: Male

DRUGS (14)
  1. BROMHEXIN [Concomitant]
     Active Substance: BROMHEXINE
     Indication: CHRONIC OBSTRUCTIVE PULMONARY DISEASE
     Dosage: 60 GTT, 1X/DAY
     Dates: end: 20011115
  2. DYNACIL [Concomitant]
     Dosage: 20 MG, 1X/DAY
     Route: 048
     Dates: end: 20011115
  3. FERRO-SANOL DUODENAL [Concomitant]
     Active Substance: FERROUS GLYCINE SULFATE
     Dosage: 1 DF, 1X/DAY
     Route: 048
     Dates: end: 20011115
  4. VITAMIN B6 [Concomitant]
     Active Substance: PYRIDOXINE HYDROCHLORIDE
     Dosage: 1 DF, 1X/DAY
     Route: 048
     Dates: end: 20011115
  5. CABASERIL [Concomitant]
     Active Substance: CABERGOLINE
     Dosage: 2 MG, 1X/DAY
     Route: 048
     Dates: end: 20011115
  6. TAVOR (LORAZEPAM) [Suspect]
     Active Substance: LORAZEPAM
     Dosage: 1 MG, 1X/DAY
     Route: 048
     Dates: start: 20011106
  7. PK MERZ [Concomitant]
     Active Substance: AMANTADINE SULFATE
     Dosage: 2 DF, 1X/DAY
     Route: 048
     Dates: end: 20011115
  8. DIGITOXIN [Concomitant]
     Active Substance: DIGITOXIN
     Indication: CARDIAC FAILURE
     Dosage: 0.07 MG, 1X/DAY
     Route: 048
     Dates: end: 20011115
  9. TOREM [Concomitant]
     Active Substance: TORSEMIDE
     Dosage: 5 MG, 1X/DAY
     Route: 048
     Dates: end: 20011115
  10. CYNT [Concomitant]
     Dosage: 0.3 MG, 1X/DAY
     Route: 048
     Dates: end: 20011115
  11. ROCEPHIN [Concomitant]
     Active Substance: CEFTRIAXONE SODIUM
     Dosage: 2000 MG, 1X/DAY
     Route: 042
  12. NORVASC [Concomitant]
     Active Substance: AMLODIPINE BESYLATE
     Indication: CARDIAC FAILURE
     Dosage: 5 MG, 1X/DAY
     Route: 048
     Dates: end: 20011115
  13. ZYPREXA [Suspect]
     Active Substance: OLANZAPINE
     Dosage: 2.5 MG, 1X/DAY
     Route: 048
     Dates: start: 20011106, end: 20011115
  14. ACC [Concomitant]
     Active Substance: ACETYLCYSTEINE
     Indication: BRONCHIOLITIS
     Dosage: 600 MG, 1X/DAY
     Route: 048
     Dates: end: 20011115

REACTIONS (2)
  - Multiple organ dysfunction syndrome [Fatal]
  - Pneumonia [Fatal]

NARRATIVE: CASE EVENT DATE: 20011106
